FAERS Safety Report 10181621 (Version 1)
Quarter: 2014Q2

REPORT INFORMATION
  Report Type: Spontaneous
  Country: US (occurrence: US)
  Receive Date: 20140519
  Receipt Date: 20140519
  Transmission Date: 20141212
  Serious: Yes (Other)
  Sender: FDA-Public Use
  Company Number: US-FRI-1000067340

PATIENT
  Sex: Female

DRUGS (2)
  1. NAMENDA XR [Suspect]
     Dosage: 28 MG
     Dates: start: 20140404
  2. NAMENDA [Suspect]
     Dosage: 20 MG
     Dates: end: 201404

REACTIONS (1)
  - Weight decreased [Unknown]
